FAERS Safety Report 16050606 (Version 1)
Quarter: 2019Q1

REPORT INFORMATION
  Report Type: Spontaneous
  Country: US (occurrence: US)
  Receive Date: 20190308
  Receipt Date: 20190308
  Transmission Date: 20190418
  Serious: Yes (Death)
  Sender: FDA-Public Use
  Company Number: US-OREXO US, INC.-ORE201902-000037

PATIENT
  Age: 30 Year
  Sex: Female
  Weight: 68.03 kg

DRUGS (2)
  1. ZUBSOLV [Suspect]
     Active Substance: BUPRENORPHINE HYDROCHLORIDE\NALOXONE HYDROCHLORIDE
     Dosage: 8.6 MG; THREE TIMES A DAY
     Dates: start: 20181207
  2. ZUBSOLV [Suspect]
     Active Substance: BUPRENORPHINE HYDROCHLORIDE\NALOXONE HYDROCHLORIDE
     Dosage: 8.6 MG; THREE TIMES IN A DAY
     Dates: start: 20181208

REACTIONS (1)
  - Overdose [None]

NARRATIVE: CASE EVENT DATE: 20190216
